FAERS Safety Report 24719989 (Version 1)
Quarter: 2024Q4

REPORT INFORMATION
  Report Type: Report from Study
  Country: AT (occurrence: AT)
  Receive Date: 20241211
  Receipt Date: 20241211
  Transmission Date: 20250114
  Serious: Yes (Hospitalization)
  Sender: ABBVIE
  Company Number: AT-ABBVIE-6038730

PATIENT
  Age: 52 Year
  Sex: Female

DRUGS (7)
  1. HUMIRA [Suspect]
     Active Substance: ADALIMUMAB
     Indication: Colitis ulcerative
     Route: 058
  2. HUMIRA [Suspect]
     Active Substance: ADALIMUMAB
     Route: 058
  3. HUMIRA [Suspect]
     Active Substance: ADALIMUMAB
     Route: 058
     Dates: start: 202302
  4. IRON [Concomitant]
     Active Substance: IRON
     Indication: Prophylaxis
  5. Dominal [Concomitant]
     Indication: Product used for unknown indication
  6. RISPERDAL [Concomitant]
     Active Substance: RISPERIDONE
     Indication: Product used for unknown indication
  7. Salofalk [Concomitant]
     Indication: Product used for unknown indication
     Dosage: TIME INTERVAL: AS NECESSARY

REACTIONS (4)
  - Mental disorder [Recovered/Resolved]
  - Constipation [Not Recovered/Not Resolved]
  - Sleep disorder [Recovering/Resolving]
  - Faecal calprotectin increased [Recovered/Resolved]

NARRATIVE: CASE EVENT DATE: 20240101
